FAERS Safety Report 14704933 (Version 1)
Quarter: 2018Q2

REPORT INFORMATION
  Report Type: Spontaneous
  Country: US (occurrence: US)
  Receive Date: 20180402
  Receipt Date: 20180402
  Transmission Date: 20180711
  Serious: Yes (Hospitalization, Other)
  Sender: FDA-Public Use
  Company Number: US-ASTELLAS-2018US015262

PATIENT
  Age: 59 Year
  Sex: Female

DRUGS (10)
  1. TACROLIMUS. [Suspect]
     Active Substance: TACROLIMUS
     Indication: PROPHYLAXIS AGAINST GRAFT VERSUS HOST DISEASE
     Dosage: UNK UNK, UNKNOWN FREQ.
     Route: 065
  2. VALGANCICLOVIR. [Suspect]
     Active Substance: VALGANCICLOVIR
     Indication: CYTOMEGALOVIRUS INFECTION
     Route: 048
  3. GANCICLOVIR. [Suspect]
     Active Substance: GANCICLOVIR
     Route: 042
  4. ACYCLOVIR                          /00587301/ [Concomitant]
     Active Substance: ACYCLOVIR
     Indication: PROPHYLAXIS
     Dosage: UNK UNK, UNKNOWN FREQ.
     Route: 065
  5. VALGANCICLOVIR. [Suspect]
     Active Substance: VALGANCICLOVIR
     Route: 048
  6. BUSULFAN. [Concomitant]
     Active Substance: BUSULFAN
     Indication: DIFFUSE LARGE B-CELL LYMPHOMA
     Dosage: UNK UNK, UNKNOWN FREQ.
     Route: 065
  7. MYCOPHENOLATE MOFETIL. [Concomitant]
     Active Substance: MYCOPHENOLATE MOFETIL
     Indication: PROPHYLAXIS AGAINST GRAFT VERSUS HOST DISEASE
     Dosage: UNK UNK, UNKNOWN FREQ.
     Route: 065
  8. FLUDARABINE [Concomitant]
     Active Substance: FLUDARABINE PHOSPHATE
     Indication: DIFFUSE LARGE B-CELL LYMPHOMA
     Dosage: UNK UNK, UNKNOWN FREQ.
     Route: 065
  9. GANCICLOVIR. [Suspect]
     Active Substance: GANCICLOVIR
     Route: 042
  10. GANCICLOVIR. [Suspect]
     Active Substance: GANCICLOVIR
     Indication: ANTIVIRAL TREATMENT
     Dosage: UNK UNK, UNKNOWN FREQ.
     Route: 065

REACTIONS (14)
  - Graft versus host disease in gastrointestinal tract [Unknown]
  - Neutropenia [Unknown]
  - Abdominal pain [Unknown]
  - Pneumatosis intestinalis [Unknown]
  - Tongue ulceration [Unknown]
  - Bacteraemia [Unknown]
  - Cytomegalovirus viraemia [Unknown]
  - Diarrhoea [Unknown]
  - JC virus infection [Unknown]
  - Escherichia bacteraemia [Unknown]
  - Off label use [Unknown]
  - Graft versus host disease in skin [Unknown]
  - Enterococcal infection [Unknown]
  - Encephalitis cytomegalovirus [Unknown]
